FAERS Safety Report 17610869 (Version 3)
Quarter: 2020Q2

REPORT INFORMATION
  Report Type: Spontaneous
  Country: EE (occurrence: EE)
  Receive Date: 20200401
  Receipt Date: 20200602
  Transmission Date: 20200713
  Serious: Yes (Other)
  Sender: FDA-Public Use
  Company Number: EE-ROCHE-2574811

PATIENT
  Age: 67 Year
  Sex: Male

DRUGS (14)
  1. CAPECITABINE. [Suspect]
     Active Substance: CAPECITABINE
     Indication: COLON CANCER
  2. OMEPRAZOLE. [Concomitant]
     Active Substance: OMEPRAZOLE
     Route: 065
  3. IRINOTECAN [Concomitant]
     Active Substance: IRINOTECAN
     Route: 065
  4. IRINOTECAN [Suspect]
     Active Substance: IRINOTECAN
     Indication: COLON CANCER
     Route: 065
  5. BEVACIZUMAB. [Concomitant]
     Active Substance: BEVACIZUMAB
     Route: 065
  6. OXALIPLATIN. [Concomitant]
     Active Substance: OXALIPLATIN
     Route: 065
  7. CAPECITABINE. [Suspect]
     Active Substance: CAPECITABINE
     Indication: CHEMOTHERAPY
     Route: 065
  8. REGORAFENIB. [Concomitant]
     Active Substance: REGORAFENIB
     Route: 065
  9. TAMSULOSIN [Concomitant]
     Active Substance: TAMSULOSIN
     Route: 065
  10. BEVACIZUMAB. [Suspect]
     Active Substance: BEVACIZUMAB
     Indication: CHEMOTHERAPY
     Route: 065
  11. BEVACIZUMAB. [Suspect]
     Active Substance: BEVACIZUMAB
     Indication: COLON CANCER
  12. IRINOTECAN [Suspect]
     Active Substance: IRINOTECAN
     Indication: CHEMOTHERAPY
  13. PEMBROLIZUMAB. [Concomitant]
     Active Substance: PEMBROLIZUMAB
     Route: 065
  14. TIPIRACIL HYDROCHLORIDE;TRIFLURIDINE [Concomitant]
     Active Substance: TIPIRACIL HYDROCHLORIDE\TRIFLURIDINE
     Route: 065

REACTIONS (5)
  - Colon cancer metastatic [Unknown]
  - Malignant neoplasm progression [Unknown]
  - Lymphadenopathy [Unknown]
  - Mesenteric vein thrombosis [Unknown]
  - Neutropenia [Unknown]

NARRATIVE: CASE EVENT DATE: 201810
